FAERS Safety Report 6071475-X (Version None)
Quarter: 2009Q1

REPORT INFORMATION
  Report Type: 
  Country: None (occurrence: None)
  Receive Date: 20090210
  Receipt Date: 20090128
  Transmission Date: 20090719
  Serious: Yes (Other)
  Sender: FDA-Public Use
  Company Number: GB-RANBAXY-2009RR-21611

PATIENT
  Sex: Male
  Weight: 81.6 kg

DRUGS (3)
  1. ISOTRETINOIN [Suspect]
     Indication: ACNE
     Dosage: 440 MG, UNK
  2. ISOTRETINOIN [Suspect]
     Indication: OVERDOSE
     Dosage: 1600 MG, UNK
  3. ISOTRETINOIN [Concomitant]
     Dosage: 80 MG, UNK

REACTIONS (4)
  - CHEILITIS [None]
  - HEADACHE [None]
  - OVERDOSE [None]
  - SKIN EXFOLIATION [None]
